FAERS Safety Report 9373287 (Version 2)
Quarter: 2013Q3

REPORT INFORMATION
  Report Type: Spontaneous
  Country: US (occurrence: US)
  Receive Date: 20130627
  Receipt Date: 20130801
  Transmission Date: 20140515
  Serious: Yes (Other)
  Sender: FDA-Public Use
  Company Number: CHPA2013US010300

PATIENT
  Age: 74 Year
  Sex: Male

DRUGS (3)
  1. EX-LAX REG STR CHOCOLATED LAX PCS SEN [Suspect]
     Indication: CONSTIPATION
     Dosage: UNK, UNK
     Route: 048
     Dates: start: 20130623
  2. DILTIAZEM [Concomitant]
     Indication: HEART RATE DECREASED
     Dosage: 180 MG, UNK
  3. STOOL SOFTENER [Concomitant]
     Indication: CONSTIPATION

REACTIONS (2)
  - Heart rate decreased [Unknown]
  - Drug ineffective [Unknown]
